FAERS Safety Report 23658159 (Version 2)
Quarter: 2024Q3

REPORT INFORMATION
  Report Type: Report from Study
  Country: GR (occurrence: GR)
  Receive Date: 20240321
  Receipt Date: 20240805
  Transmission Date: 20241017
  Serious: Yes (Death, Other)
  Sender: SANOFI AVENTIS
  Company Number: GR-SA-SAC20240229001602

PATIENT
  Sex: Male

DRUGS (1)
  1. BELUMOSUDIL MESYLATE [Suspect]
     Active Substance: BELUMOSUDIL MESYLATE
     Dosage: UNK
     Route: 065
     Dates: start: 20240219

REACTIONS (2)
  - Leukaemia [Fatal]
  - Herpes zoster [Unknown]

NARRATIVE: CASE EVENT DATE: 20240201
